FAERS Safety Report 15710572 (Version 8)
Quarter: 2022Q3

REPORT INFORMATION
  Report Type: Spontaneous
  Country: US (occurrence: US)
  Receive Date: 20181211
  Receipt Date: 20220906
  Transmission Date: 20221026
  Serious: Yes (Hospitalization, Other)
  Sender: FDA-Public Use
  Company Number: US-PFIZER INC-2018503839

PATIENT
  Age: 62 Year
  Sex: Female

DRUGS (2)
  1. XELJANZ XR [Suspect]
     Active Substance: TOFACITINIB CITRATE
     Indication: Rheumatoid arthritis
     Dosage: 11 MG, 1X/DAY
     Dates: start: 2017
  2. XELJANZ XR [Suspect]
     Active Substance: TOFACITINIB CITRATE
     Dosage: UNK
     Dates: start: 202208

REACTIONS (12)
  - Atrial fibrillation [Unknown]
  - Diabetes mellitus [Unknown]
  - Gallbladder obstruction [Recovered/Resolved]
  - Gallbladder disorder [Recovered/Resolved]
  - Liver disorder [Recovered/Resolved]
  - Abdominal distension [Unknown]
  - Pain [Unknown]
  - Faeces pale [Unknown]
  - Cor pulmonale [Unknown]
  - Condition aggravated [Recovered/Resolved]
  - Memory impairment [Unknown]
  - Arthralgia [Recovered/Resolved]

NARRATIVE: CASE EVENT DATE: 20181001
